FAERS Safety Report 9343869 (Version 1)
Quarter: 2013Q2

REPORT INFORMATION
  Report Type: Spontaneous
  Country: US (occurrence: US)
  Receive Date: 20130612
  Receipt Date: 20130612
  Transmission Date: 20140414
  Serious: No
  Sender: FDA-Public Use
  Company Number: US-PFIZER INC-2013173027

PATIENT
  Age: 11 Year
  Sex: Male
  Weight: 29.03 kg

DRUGS (1)
  1. VFEND [Suspect]
     Indication: ASPERGILLUS INFECTION
     Dosage: 115 MG, 2X/DAY
     Dates: start: 20130416

REACTIONS (1)
  - Drug level below therapeutic [Unknown]
